FAERS Safety Report 5840306-2 (Version None)
Quarter: 2008Q3

REPORT INFORMATION
  Report Type: 
  Country: None (occurrence: None)
  Receive Date: 20080807
  Receipt Date: 20080807
  Transmission Date: 20090109
  Serious: Yes (Life-Threatening, Hospitalization)
  Sender: FDA-Public Use
  Company Number: None

PATIENT
  Age: 14 Month
  Sex: Male
  Weight: 10.8863 kg

DRUGS (1)
  1. JOHNSON'S SOOTHING VAPOR BATH [Suspect]
     Dosage: TOPICAL
     Route: 061
     Dates: start: 20080729, end: 20080730

REACTIONS (2)
  - CYANOSIS [None]
  - OXYGEN SATURATION DECREASED [None]
